FAERS Safety Report 9238958 (Version 1)
Quarter: 2013Q2

REPORT INFORMATION
  Report Type: Spontaneous
  Country: US (occurrence: US)
  Receive Date: 20130418
  Receipt Date: 20130418
  Transmission Date: 20140414
  Serious: Yes (Death, Life-Threatening, Hospitalization)
  Sender: FDA-Public Use
  Company Number: PHEH2013US008575

PATIENT
  Sex: Male
  Weight: 79.82 kg

DRUGS (10)
  1. AFINITOR [Suspect]
     Indication: METASTATIC RENAL CELL CARCINOMA
     Dosage: 10 MG, QD
     Route: 048
     Dates: start: 20130304, end: 20130313
  2. HCTZ [Concomitant]
     Dosage: 25 MG, QD
  3. POTASSIUM [Concomitant]
     Dosage: 20 MEQ, QD
  4. AMARYL [Concomitant]
     Dosage: 2 MG, QD
  5. ALLOPURINOL [Concomitant]
     Dosage: 1 DF, QD
  6. LOVASTATIN [Concomitant]
     Dosage: 40 MG, QD
  7. AMIODARONE [Concomitant]
     Dosage: 200 MG, QD
  8. FLOMAX [Concomitant]
     Dosage: 0.4 MG, QD
  9. METOPROLOL [Concomitant]
     Dosage: 25 MG, BID
  10. Z-PAK [Concomitant]

REACTIONS (6)
  - Death [Fatal]
  - Respiratory failure [None]
  - Hypoxia [None]
  - Dyspnoea [None]
  - Pneumonitis [None]
  - Lung infiltration [None]
